FAERS Safety Report 5888076-6 (Version None)
Quarter: 2008Q3

REPORT INFORMATION
  Report Type: 
  Country: None (occurrence: None)
  Receive Date: 20080818
  Receipt Date: 20070614
  Transmission Date: 20090109
  Serious: Yes (Hospitalization)
  Sender: FDA-Public Use
  Company Number: 20073765

PATIENT
  Age: 55 Year
  Sex: Male

DRUGS (3)
  1. LIORESAL [Suspect]
     Indication: MUSCLE SPASTICITY
     Dosage: 518 MCG, DAILY, INTRATHECAL
     Route: 037
  2. MORPHINE SULFATE INJ [Concomitant]
  3. BUPIVACAINE [Concomitant]

REACTIONS (8)
  - AGITATION [None]
  - CONFUSIONAL STATE [None]
  - DRUG INEFFECTIVE [None]
  - HALLUCINATION [None]
  - PAIN [None]
  - PARAESTHESIA [None]
  - THINKING ABNORMAL [None]
  - WITHDRAWAL SYNDROME [None]
